FAERS Safety Report 22215861 (Version 1)
Quarter: 2023Q2

REPORT INFORMATION
  Report Type: Spontaneous
  Country: US (occurrence: US)
  Receive Date: 20230417
  Receipt Date: 20230417
  Transmission Date: 20230722
  Serious: No
  Sender: FDA-Public Use
  Company Number: US-drreddys-SPO/USA/23/0162848

PATIENT
  Age: 19 Year
  Sex: Female

DRUGS (2)
  1. ZENATANE [Suspect]
     Active Substance: ISOTRETINOIN
     Indication: Product used for unknown indication
     Dosage: RMA ISSUE DATE: 05 NOVEMBER 2022 05:51:55 PM, 08 DECEMBER 2022 02:40:29 PM, 02:50:16 PM, 07 JANUARY2
  2. ZENATANE [Suspect]
     Active Substance: ISOTRETINOIN
     Dosage: RMA ISSUE DATE: 08 DECEMBER 2022 02:40:29 PM, 02:50:16 PM

REACTIONS (1)
  - Adverse drug reaction [Unknown]
